FAERS Safety Report 7939299-3 (Version None)
Quarter: 2011Q4

REPORT INFORMATION
  Report Type: 
  Country: None (occurrence: None)
  Receive Date: 20111125
  Receipt Date: 20101203
  Transmission Date: 20120403
  Serious: No
  Sender: FDA-Public Use
  Company Number: US-BAYER-2010-004784

PATIENT
  Age: 40 Year
  Sex: Female
  Weight: 66 kg

DRUGS (4)
  1. ULTRAVIST 150 [Suspect]
  2. CYMBALTA [Concomitant]
  3. FEMARA [Concomitant]
  4. ULTRAVIST 150 [Suspect]
     Indication: COMPUTERISED TOMOGRAM
     Dosage: 8 ML, ONCE
     Route: 042
     Dates: start: 20101203, end: 20101203

REACTIONS (2)
  - PRURITUS [None]
  - URTICARIA [None]
